FAERS Safety Report 7279131-7 (Version None)
Quarter: 2011Q1

REPORT INFORMATION
  Report Type: 
  Country: None (occurrence: None)
  Receive Date: 20110207
  Receipt Date: 20110125
  Transmission Date: 20110831
  Serious: Yes (Hospitalization)
  Sender: FDA-Public Use
  Company Number: CO-GENENTECH-312900

PATIENT
  Sex: Male

DRUGS (2)
  1. MONTELUKAST SODIUM [Concomitant]
     Indication: CYSTIC FIBROSIS
     Dosage: UNK
     Route: 048
  2. PULMOZYME [Suspect]
     Indication: CYSTIC FIBROSIS
     Dosage: UNK
     Route: 055
     Dates: start: 20030624

REACTIONS (1)
  - PNEUMONIA [None]
